FAERS Safety Report 5697030-9 (Version None)
Quarter: 2008Q2

REPORT INFORMATION
  Report Type: 
  Country: None (occurrence: None)
  Receive Date: 20080408
  Receipt Date: 20070328
  Transmission Date: 20081010
  Serious: No
  Sender: FDA-Public Use
  Company Number: US-BAYER-US-2007-011207

PATIENT
  Age: 19 Year
  Sex: Female
  Weight: 59 kg

DRUGS (2)
  1. YASMIN [Suspect]
     Indication: CONTRACEPTION
     Route: 048
     Dates: start: 20070101
  2. ATEROL [Concomitant]

REACTIONS (1)
  - LOSS OF LIBIDO [None]
